FAERS Safety Report 9971181 (Version 2)
Quarter: 2014Q1

REPORT INFORMATION
  Report Type: Report from Study
  Country: US (occurrence: US)
  Receive Date: 20140306
  Receipt Date: 20140306
  Transmission Date: 20141002
  Serious: No
  Sender: FDA-Public Use
  Company Number: US-ABBVIE-13P-163-1108000-00

PATIENT
  Age: 48 Year
  Sex: Female

DRUGS (9)
  1. HUMIRA [Suspect]
     Indication: COLITIS ULCERATIVE
     Dosage: LOADING DOSE
     Dates: start: 20130619, end: 20130619
  2. HUMIRA [Suspect]
  3. ASACOL [Concomitant]
     Indication: PRODUCT USED FOR UNKNOWN INDICATION
     Dosage: 800 MG 2 TABS
  4. METFORMIN [Concomitant]
     Indication: DIABETES MELLITUS
  5. METFORMIN [Concomitant]
  6. CALCIUM [Concomitant]
     Indication: MINERAL SUPPLEMENTATION
  7. VIT D [Concomitant]
     Indication: VITAMIN D DECREASED
  8. AMLODIPINE BESYLATE [Concomitant]
     Indication: HYPERTENSION
     Dosage: 10 MG / 20 MG
  9. ALEVE [Concomitant]
     Indication: ARTHRALGIA

REACTIONS (1)
  - Injection site pain [Recovered/Resolved]
